FAERS Safety Report 5147962-5 (Version None)
Quarter: 2006Q4

REPORT INFORMATION
  Report Type: 
  Country: None (occurrence: None)
  Receive Date: 20061106
  Receipt Date: 20061027
  Transmission Date: 20070319
  Serious: Yes (Other)
  Sender: FDA-Public Use
  Company Number: MC200600723

PATIENT
  Age: 55 Year
  Sex: Male

DRUGS (2)
  1. ANGIOMAX [Suspect]
     Indication: PERIPHERAL REVASCULARISATION
     Dosage: SEE IMAGE
     Route: 042
     Dates: start: 20061016, end: 20061016
  2. ANGIOMAX [Suspect]
     Indication: PERIPHERAL REVASCULARISATION
     Dosage: SEE IMAGE
     Route: 042
     Dates: start: 20061016

REACTIONS (2)
  - EMBOLISM [None]
  - POST PROCEDURAL COMPLICATION [None]
